FAERS Safety Report 4571974-3 (Version None)
Quarter: 2005Q1

REPORT INFORMATION
  Report Type: 
  Country: None (occurrence: None)
  Receive Date: 20050203
  Receipt Date: 20050203
  Transmission Date: 20050727
  Serious: Yes (Other)
  Sender: FDA-Public Use
  Company Number: None

PATIENT
  Sex: Female
  Weight: 66.2252 kg

DRUGS (2)
  1. OGEN 1.25 [Suspect]
     Indication: HORMONE REPLACEMENT THERAPY
     Dosage: 1 PATCH DAILY
     Route: 062
  2. CLIMARA [Suspect]

REACTIONS (3)
  - APPLICATION SITE URTICARIA [None]
  - DIARRHOEA [None]
  - NAUSEA [None]
